FAERS Safety Report 6141044-1 (Version None)
Quarter: 2009Q2

REPORT INFORMATION
  Report Type: 
  Country: None (occurrence: None)
  Receive Date: 20090402
  Receipt Date: 20090324
  Transmission Date: 20091009
  Serious: Yes (Life-Threatening, Hospitalization)
  Sender: FDA-Public Use
  Company Number: JP-BRISTOL-MYERS SQUIBB COMPANY-14563340

PATIENT
  Age: 53 Year
  Sex: Female

DRUGS (1)
  1. SPRYCEL [Suspect]
     Indication: ACUTE LYMPHOCYTIC LEUKAEMIA
     Dosage: INITIATED ON 11MAR09
     Route: 048
     Dates: start: 20090311, end: 20090321

REACTIONS (3)
  - GRAFT VERSUS HOST DISEASE [None]
  - HAEMATURIA [None]
  - RESPIRATORY DISORDER [None]
